FAERS Safety Report 8820682 (Version 1)
Quarter: 2012Q4

REPORT INFORMATION
  Report Type: 
  Country: FR (occurrence: FR)
  Receive Date: 20121002
  Receipt Date: 20121002
  Transmission Date: 20130627
  Serious: Yes (Death)
  Sender: FDA-Public Use
  Company Number: FR-AMGEN-FRACT2012062030

PATIENT
  Sex: Female

DRUGS (20)
  1. DARBEPOETIN ALFA [Suspect]
     Indication: NEPHROGENIC ANAEMIA
     Dosage: 30 mug, qwk
     Route: 042
     Dates: start: 20090821, end: 20120630
  2. MIANSERIN HYDROCHLORIDE [Concomitant]
     Dosage: UNK
     Dates: start: 20060828
  3. WARFARIN SODIUM [Concomitant]
     Dosage: UNK
     Dates: start: 20090908
  4. PARACETAMOL [Concomitant]
     Dosage: UNK
     Dates: start: 20090216
  5. LIDOCAINE W/PRILOCAINE [Concomitant]
     Dosage: UNK
     Dates: start: 20081217
  6. AMINOPHYLIN [Concomitant]
     Dosage: UNK
     Dates: start: 20090323
  7. HIRUDIN [Concomitant]
     Dosage: UNK
     Dates: start: 20090814
  8. TRAMADOL [Concomitant]
     Dosage: UNK
     Dates: start: 20091229
  9. LEVOTHYROXINE SODIUM [Concomitant]
     Dosage: UNK
     Dates: start: 20040612
  10. INSULIN ASPART [Concomitant]
     Dosage: UNK
     Dates: start: 20100103
  11. INSULIN [Concomitant]
     Dosage: UNK
     Dates: start: 20080908
  12. ATORVASTATIN CALCIUM [Concomitant]
     Dosage: UNK
     Dates: start: 20061103
  13. DOMPERIDONE [Concomitant]
     Dosage: UNK
     Dates: start: 20110512
  14. PHENAZONE [Concomitant]
     Dosage: UNK
     Dates: start: 20120207
  15. DICLOFENAC [Concomitant]
     Dosage: UNK
     Dates: start: 20120409
  16. LORATADINE [Concomitant]
     Dosage: UNK
     Dates: start: 20120623
  17. FUROSEMIDE [Concomitant]
     Dosage: UNK
     Dates: start: 20090309
  18. PREGABALIN [Concomitant]
     Dosage: UNK
     Dates: start: 20120628
  19. CHOLECALCIFEROL [Concomitant]
     Dosage: UNK
     Dates: start: 20110623
  20. ZOPLICONE [Concomitant]
     Dosage: UNK
     Dates: start: 20080822

REACTIONS (1)
  - Death [Fatal]
